FAERS Safety Report 18037267 (Version 2)
Quarter: 2020Q3

REPORT INFORMATION
  Report Type: Report from Study
  Country: CA (occurrence: CA)
  Receive Date: 20200717
  Receipt Date: 20200805
  Transmission Date: 20201103
  Serious: Yes (Other)
  Sender: FDA-Public Use
  Company Number: CA-JNJFOC-20200714039

PATIENT
  Age: 10 Year
  Sex: Male
  Weight: 23.8 kg

DRUGS (2)
  1. REMICADE [Suspect]
     Active Substance: INFLIXIMAB
     Indication: COLITIS ULCERATIVE
     Route: 042
     Dates: start: 20200206
  2. REMICADE [Suspect]
     Active Substance: INFLIXIMAB
     Dosage: 08TH INFLIXIMAB INFUSION
     Route: 042
     Dates: start: 20200708

REACTIONS (3)
  - Diarrhoea haemorrhagic [Unknown]
  - General physical health deterioration [Unknown]
  - Asthenia [Unknown]

NARRATIVE: CASE EVENT DATE: 20200706
